FAERS Safety Report 26174690 (Version 1)
Quarter: 2025Q4

REPORT INFORMATION
  Report Type: Spontaneous
  Country: US (occurrence: None)
  Receive Date: 20251217
  Receipt Date: 20251217
  Transmission Date: 20260117
  Serious: Yes (Hospitalization)
  Sender: FDA-CTU
  Company Number: None

PATIENT
  Age: 59 Year
  Sex: Female

DRUGS (1)
  1. BETASERON [Suspect]
     Active Substance: INTERFERON BETA-1B
     Dosage: OTHER FREQUENCY : EVERY OTHER DAY;
     Route: 058
     Dates: start: 20240209

REACTIONS (5)
  - Infection [None]
  - Sepsis [None]
  - Condition aggravated [None]
  - Neck injury [None]
  - Erythema [None]

NARRATIVE: CASE EVENT DATE: 20251212
